FAERS Safety Report 6525429-7 (Version None)
Quarter: 2009Q4

REPORT INFORMATION
  Report Type: 
  Country: None (occurrence: None)
  Receive Date: 20091214
  Receipt Date: 20090430
  Transmission Date: 20100525
  Serious: Yes (Other)
  Sender: FDA-Public Use
  Company Number: 630941

PATIENT
  Age: 62 Year
  Sex: Male
  Weight: 83.9 kg

DRUGS (6)
  1. PEGASYS [Suspect]
     Indication: HEPATITIS C
     Dosage: 100 UG 1 PER WEEK SUBCUTANEOUS
     Route: 058
     Dates: start: 20080404, end: 20090319
  2. RIBAVIRIN [Suspect]
     Indication: HEPATITIS C
     Dosage: 1200 MG DAILY ORAL
     Route: 048
     Dates: start: 20080404, end: 20090319
  3. DIPHENHYDRAMINE HCL [Concomitant]
  4. HYDROXYZINE [Concomitant]
  5. BUPROPION HCL [Concomitant]
  6. EPOETIN (EPOETIN NOS) [Concomitant]

REACTIONS (2)
  - ANAEMIA [None]
  - PULMONARY SARCOIDOSIS [None]
